FAERS Safety Report 10183768 (Version 1)
Quarter: 2014Q2

REPORT INFORMATION
  Report Type: Spontaneous
  Country: CH (occurrence: CH)
  Receive Date: 20140520
  Receipt Date: 20140520
  Transmission Date: 20141212
  Serious: Yes (Other)
  Sender: FDA-Public Use
  Company Number: PHHY2014CH057555

PATIENT
  Age: 53 Year
  Sex: Female

DRUGS (1)
  1. MOMETASONE [Suspect]
     Indication: RHINITIS
     Dosage: 2 DF, BID
     Route: 006

REACTIONS (9)
  - Mania [Recovered/Resolved]
  - Irritability [Recovered/Resolved]
  - Psychomotor hyperactivity [Recovered/Resolved]
  - Paranoia [Recovered/Resolved]
  - Thinking abnormal [Recovered/Resolved]
  - Insomnia [Recovered/Resolved]
  - Logorrhoea [Recovered/Resolved]
  - Flight of ideas [Recovered/Resolved]
  - Disturbance in attention [Recovered/Resolved]
